FAERS Safety Report 6749491-1 (Version None)
Quarter: 2010Q2

REPORT INFORMATION
  Report Type: 
  Country: None (occurrence: None)
  Receive Date: 20100601
  Receipt Date: 20100526
  Transmission Date: 20101027
  Serious: Yes (Death)
  Sender: FDA-Public Use
  Company Number: RO-ASTRAZENECA-2010SE23613

PATIENT
  Age: 47 Year
  Sex: Female
  Weight: 78 kg

DRUGS (7)
  1. ATACAND [Suspect]
     Route: 048
     Dates: start: 20050101, end: 20060101
  2. BETALOC ZOK [Concomitant]
     Indication: CARDIAC FAILURE CONGESTIVE
     Route: 048
  3. DIGOXIN [Concomitant]
     Indication: CARDIAC FAILURE CONGESTIVE
     Route: 048
  4. TERTENSIF SR [Concomitant]
     Indication: CARDIAC FAILURE CONGESTIVE
     Route: 048
  5. SORTIS [Concomitant]
     Indication: DYSLIPIDAEMIA
     Route: 048
  6. ASPENTER [Concomitant]
     Indication: MYOCARDIAL ISCHAEMIA
     Route: 048
  7. SIOFOR [Concomitant]
     Indication: TYPE 2 DIABETES MELLITUS
     Route: 048

REACTIONS (1)
  - ACUTE MYOCARDIAL INFARCTION [None]
